FAERS Safety Report 23628923 (Version 1)
Quarter: 2024Q1

REPORT INFORMATION
  Report Type: Spontaneous
  Country: US (occurrence: US)
  Receive Date: 20240313
  Receipt Date: 20240313
  Transmission Date: 20240409
  Serious: No
  Sender: FDA-Public Use
  Company Number: US-ABBVIE-5678266

PATIENT
  Sex: Female

DRUGS (1)
  1. DURYSTA [Suspect]
     Active Substance: BIMATOPROST
     Indication: Glaucoma
     Dosage: TIME INTERVAL: AS NECESSARY: OPHTHALMIC; FORM STRENGTH: 10 MICROGRAM
     Route: 050

REACTIONS (2)
  - Iris adhesions [Unknown]
  - Intraocular pressure increased [Not Recovered/Not Resolved]
